FAERS Safety Report 4324196-5 (Version None)
Quarter: 2004Q1

REPORT INFORMATION
  Report Type: 
  Country: None (occurrence: None)
  Receive Date: 20040325
  Receipt Date: 20040311
  Transmission Date: 20041129
  Serious: Yes (Death)
  Sender: FDA-Public Use
  Company Number: 2004S1000144

PATIENT
  Age: 65 Year
  Sex: Male

DRUGS (7)
  1. CLOZAPINE [Suspect]
     Dosage: 75 MG Q HS, ORAL
     Route: 048
  2. ALBUTEROL [Concomitant]
  3. CEPHALEXIN [Concomitant]
  4. FLUTICASONE PROPIONATE [Concomitant]
  5. IPRATROPIUM BROMIDE [Concomitant]
  6. METRONIDAZOLE [Concomitant]
  7. CARBIDOPA AND LEVODOPA [Concomitant]

REACTIONS (3)
  - GENERAL PHYSICAL HEALTH DETERIORATION [None]
  - PARKINSON'S DISEASE [None]
  - RESPIRATORY DISORDER [None]
